FAERS Safety Report 6782473-2 (Version None)
Quarter: 2010Q2

REPORT INFORMATION
  Report Type: 
  Country: None (occurrence: None)
  Receive Date: 20100616
  Receipt Date: 20100601
  Transmission Date: 20101027
  Serious: Yes (Hospitalization)
  Sender: FDA-Public Use
  Company Number: 009983

PATIENT
  Sex: Female
  Weight: 64.8 kg

DRUGS (9)
  1. LACOSAMIDE [Suspect]
     Indication: CONVULSION
     Dosage: SEE IMAGE
     Route: 048
     Dates: end: 20100513
  2. LACOSAMIDE [Suspect]
     Indication: CONVULSION
     Dosage: SEE IMAGE
     Route: 048
     Dates: start: 20091201
  3. LACOSAMIDE [Suspect]
     Indication: CONVULSION
     Dosage: SEE IMAGE
     Route: 048
     Dates: start: 20091201
  4. LACOSAMIDE [Suspect]
     Indication: CONVULSION
     Dosage: SEE IMAGE
     Route: 048
     Dates: start: 20091201
  5. LACOSAMIDE [Suspect]
     Indication: CONVULSION
     Dosage: SEE IMAGE
     Route: 048
     Dates: start: 20091201
  6. KEPPRA [Suspect]
     Indication: CONVULSION
     Dosage: MG TWICE DAILY ORAL
     Route: 048
     Dates: start: 20091010, end: 20091130
  7. MEBARAL [Concomitant]
  8. KLONOPIN [Concomitant]
  9. ZOLEDRONIC ACID [Concomitant]

REACTIONS (12)
  - CATARACT OPERATION [None]
  - COGNITIVE DISORDER [None]
  - CONDITION AGGRAVATED [None]
  - CONVULSION [None]
  - DIPLOPIA [None]
  - FATIGUE [None]
  - INCORRECT DOSE ADMINISTERED [None]
  - INSOMNIA [None]
  - MEMORY IMPAIRMENT [None]
  - NIGHTMARE [None]
  - SOMNOLENCE [None]
  - VISION BLURRED [None]
